FAERS Safety Report 24777268 (Version 1)
Quarter: 2024Q4

REPORT INFORMATION
  Report Type: Other
  Country: JP (occurrence: JP)
  Receive Date: 20241226
  Receipt Date: 20241226
  Transmission Date: 20250115
  Serious: Yes (Life-Threatening, Hospitalization, Other)
  Sender: EMD SERONO INC
  Company Number: JP-Merck Healthcare KGaA-2024067216

PATIENT
  Age: 50 Year
  Sex: Male

DRUGS (1)
  1. METGLUCO [Suspect]
     Active Substance: METFORMIN HYDROCHLORIDE
     Indication: Type 2 diabetes mellitus
     Dosage: SINGLE

REACTIONS (4)
  - Renal impairment [Unknown]
  - Lactic acidosis [Recovered/Resolved]
  - Intentional overdose [Unknown]
  - Suicidal ideation [Not Recovered/Not Resolved]
